FAERS Safety Report 4269379-8 (Version None)
Quarter: 2004Q1

REPORT INFORMATION
  Report Type: 
  Country: None (occurrence: None)
  Receive Date: 20040113
  Receipt Date: 20031021
  Transmission Date: 20041129
  Serious: Yes (Disabling)
  Sender: FDA-Public Use
  Company Number: WAES 0310FRA00066

PATIENT
  Age: 69 Year
  Sex: Female

DRUGS (8)
  1. CISPLATIN [Concomitant]
     Route: 042
     Dates: end: 20030801
  2. CYTARABINE [Concomitant]
     Dates: end: 20030801
  3. DIOSMIN [Concomitant]
     Indication: VENOUS INSUFFICIENCY
     Route: 048
  4. GLICLAZIDE [Concomitant]
     Indication: DIABETES MELLITUS NON-INSULIN-DEPENDENT
     Route: 048
  5. LACTITOL [Concomitant]
     Route: 048
  6. RITUXIMAB [Suspect]
     Route: 042
     Dates: end: 20031001
  7. ZOCOR [Suspect]
     Indication: HYPERCHOLESTEROLAEMIA
     Route: 048
  8. TRIMEBUTINE [Concomitant]
     Route: 048

REACTIONS (4)
  - OPTIC NEURITIS [None]
  - OPTIC NEUROPATHY [None]
  - PAPILLOEDEMA [None]
  - SCOTOMA [None]
